FAERS Safety Report 11267401 (Version 1)
Quarter: 2015Q3

REPORT INFORMATION
  Report Type: Spontaneous
  Country: US (occurrence: US)
  Receive Date: 20150713
  Receipt Date: 20150713
  Transmission Date: 20151125
  Serious: Yes (Other)
  Sender: FDA-Public Use
  Company Number: US-MYLANLABS-2015M1022872

PATIENT

DRUGS (1)
  1. MELPHALAN [Suspect]
     Active Substance: MELPHALAN
     Indication: CONGENITAL RETINOBLASTOMA
     Route: 050

REACTIONS (5)
  - Cataract [Recovered/Resolved]
  - Conjunctival hyperaemia [Unknown]
  - Iris adhesions [Unknown]
  - Keratopathy [Recovering/Resolving]
  - Conjunctival ulcer [Recovered/Resolved]
